FAERS Safety Report 6981055-7 (Version None)
Quarter: 2010Q3

REPORT INFORMATION
  Report Type: 
  Country: None (occurrence: None)
  Receive Date: 20100914
  Receipt Date: 20100827
  Transmission Date: 20110219
  Serious: Yes (Hospitalization)
  Sender: FDA-Public Use
  Company Number: US-BAYER-201016350NA

PATIENT
  Age: 37 Year
  Sex: Female
  Weight: 125 kg

DRUGS (21)
  1. YAZ [Suspect]
     Indication: POLYCYSTIC OVARIES
     Dosage: PHARMACY RECORDS INDICATED FROM 08-JUL-2008 UNTIL 07-AUG-2010.
     Route: 048
     Dates: start: 20090831, end: 20091201
  2. YASMIN [Suspect]
     Indication: MENSTRUAL DISORDER
     Dosage: PHARMACY RECORDS INDICATED FROM 16-NOV-2006 UNTIL 19-MAY-2008.
     Route: 048
     Dates: start: 20061207, end: 20090831
  3. KEFLEX [Concomitant]
  4. PRAVACHOL [Concomitant]
  5. ASPIRIN [Concomitant]
  6. IBUPROFEN [Concomitant]
  7. MIGRAINE MEDICATION [Concomitant]
  8. METFORMIN [Concomitant]
     Dates: start: 20070110
  9. FLUOXETINE [Concomitant]
  10. PRAVASTATIN [Concomitant]
     Dates: start: 20070718
  11. PRAVASTATIN [Concomitant]
     Dates: start: 20070130, end: 20070702
  12. SPIRONOLACTONE [Concomitant]
     Dosage: 25/25
     Dates: start: 20061116
  13. HYDROCHLOROTHIAZIDE [Concomitant]
  14. OMEPRAZOLE [Concomitant]
     Dates: start: 20070806
  15. LORTAB [Concomitant]
  16. LISINOPRIL [Concomitant]
  17. PROZAC [Concomitant]
  18. PRILOSEC [Concomitant]
  19. FLUOXETINE [Concomitant]
     Dates: start: 20071102
  20. FLUOXETINE [Concomitant]
     Dates: start: 20070605, end: 20071004
  21. AZITHROMYCIN [Concomitant]
     Dates: start: 20071121

REACTIONS (8)
  - ABDOMINAL PAIN [None]
  - CHOLECYSTITIS ACUTE [None]
  - CHOLELITHIASIS [None]
  - GASTRITIS [None]
  - LIVER FUNCTION TEST ABNORMAL [None]
  - NAUSEA [None]
  - PANCREATITIS ACUTE [None]
  - URINARY TRACT INFECTION [None]
